FAERS Safety Report 10208980 (Version 1)
Quarter: 2014Q2

REPORT INFORMATION
  Report Type: Spontaneous
  Country: FR (occurrence: FR)
  Receive Date: 20140530
  Receipt Date: 20140530
  Transmission Date: 20141212
  Serious: Yes (Hospitalization)
  Sender: FDA-Public Use
  Company Number: PHHY2014FR063423

PATIENT
  Age: 41 Year
  Sex: Male

DRUGS (9)
  1. SINTROM [Suspect]
     Dosage: UNK UKN, UNK
     Route: 048
     Dates: start: 201402
  2. ALLOPURINOL [Interacting]
     Dosage: UNK UKN, UNK
     Route: 048
  3. ATARAX//HYDROXYZINE [Concomitant]
     Dosage: UNK UKN, UNK
  4. LANSOPRAZOLE [Concomitant]
     Dosage: UNK UKN, UNK
  5. RAMIPRIL [Concomitant]
     Dosage: UNK UKN, UNK
  6. LEVOTHYROX [Concomitant]
     Dosage: UNK UKN, UNK
  7. SPIRIVA [Concomitant]
     Dosage: UNK UKN, UNK
  8. SERETIDE [Concomitant]
     Dosage: UNK UKN, UNK
  9. PREDNISOLONE [Concomitant]
     Dosage: 40 MG, FOR 3 DAYS EVERY 15 DAYS

REACTIONS (2)
  - Haemoptysis [Recovered/Resolved]
  - Drug interaction [Recovered/Resolved]
